FAERS Safety Report 19580035 (Version 1)
Quarter: 2021Q3

REPORT INFORMATION
  Report Type: Spontaneous
  Country: CN (occurrence: CN)
  Receive Date: 20210720
  Receipt Date: 20210720
  Transmission Date: 20211014
  Serious: Yes (Other)
  Sender: FDA-Public Use
  Company Number: CN-ROCHE-2871788

PATIENT
  Sex: Female
  Weight: 60 kg

DRUGS (9)
  1. PACLITAXEL LIPOSOME [Suspect]
     Active Substance: PACLITAXEL
     Route: 042
     Dates: start: 20210601
  2. PACLITAXEL LIPOSOME [Suspect]
     Active Substance: PACLITAXEL
     Indication: INVASIVE DUCTAL BREAST CARCINOMA
     Route: 065
  3. HERCEPTIN [Suspect]
     Active Substance: TRASTUZUMAB
     Route: 041
     Dates: start: 20210601
  4. MAGNESIUM ISOGLYCYRRHIZINATE [Concomitant]
     Active Substance: MAGNESIUM ISOGLYCYRRHIZINATE
     Dates: start: 20210530
  5. PERJETA [Suspect]
     Active Substance: PERTUZUMAB
     Indication: INVASIVE DUCTAL BREAST CARCINOMA
     Route: 041
  6. PERJETA [Suspect]
     Active Substance: PERTUZUMAB
     Route: 041
     Dates: start: 20210601
  7. HERCEPTIN [Suspect]
     Active Substance: TRASTUZUMAB
     Indication: INVASIVE DUCTAL BREAST CARCINOMA
     Route: 041
  8. GLUTATHIONE [Concomitant]
     Active Substance: GLUTATHIONE
     Dates: start: 20210619
  9. DIAMMONIUM GLYCYRRHIZINATE [Concomitant]
     Active Substance: HERBALS\DIAMMONIUM GLYCYRRHIZINATE

REACTIONS (2)
  - Drug-induced liver injury [Recovering/Resolving]
  - Hepatic function abnormal [Unknown]

NARRATIVE: CASE EVENT DATE: 20210619
